FAERS Safety Report 7077392-0 (Version None)
Quarter: 2010Q4

REPORT INFORMATION
  Report Type: 
  Country: None (occurrence: None)
  Receive Date: 20101101
  Receipt Date: 20101021
  Transmission Date: 20110411
  Serious: Yes (Hospitalization)
  Sender: FDA-Public Use
  Company Number: JP-MERCK-1010USA02797

PATIENT
  Age: 74 Year
  Sex: Male

DRUGS (6)
  1. JANUVIA [Suspect]
     Route: 048
     Dates: end: 20101013
  2. PARIET [Concomitant]
     Route: 048
     Dates: end: 20101013
  3. NAUZELIN [Concomitant]
     Route: 065
     Dates: end: 20101013
  4. MUCOSTA [Concomitant]
     Route: 048
     Dates: end: 20101013
  5. URSO 250 [Concomitant]
     Route: 048
     Dates: end: 20101013
  6. POLITOSE (AMYLASE (+) CELLULASE (+) LIPASE (+) PANCREATIN (+) PROTEASE [Concomitant]
     Route: 048
     Dates: end: 20101013

REACTIONS (1)
  - WHITE BLOOD CELL COUNT DECREASED [None]
